FAERS Safety Report 11408542 (Version 1)
Quarter: 2015Q3

REPORT INFORMATION
  Report Type: Spontaneous
  Country: TR (occurrence: TR)
  Receive Date: 20150822
  Receipt Date: 20150822
  Transmission Date: 20151125
  Serious: Yes (Other)
  Sender: FDA-Public Use
  Company Number: TR-CIPLA LTD.-2015TR06665

PATIENT

DRUGS (4)
  1. LAMIVUDINE. [Suspect]
     Active Substance: LAMIVUDINE
     Indication: RENAL IMPAIRMENT
  2. TELBIVUDINE [Suspect]
     Active Substance: TELBIVUDINE
     Indication: ANTIVIRAL PROPHYLAXIS
     Dosage: 600 MG, QD
     Route: 065
  3. LAMIVUDINE. [Suspect]
     Active Substance: LAMIVUDINE
     Indication: ANTIVIRAL PROPHYLAXIS
     Dosage: UNK
     Route: 065
  4. TELBIVUDINE [Suspect]
     Active Substance: TELBIVUDINE
     Indication: RENAL IMPAIRMENT

REACTIONS (1)
  - Myopathy [Unknown]
